FAERS Safety Report 5065294-0 (Version None)
Quarter: 2006Q3

REPORT INFORMATION
  Report Type: 
  Country: None (occurrence: None)
  Receive Date: 20060731
  Receipt Date: 20060719
  Transmission Date: 20061208
  Serious: Yes (Other)
  Sender: FDA-Public Use
  Company Number: US-JNJFOC-20060703931

PATIENT
  Sex: Female
  Weight: 75.75 kg

DRUGS (2)
  1. REMICADE [Suspect]
     Indication: CROHN'S DISEASE
     Route: 042
  2. CIPRO [Concomitant]

REACTIONS (2)
  - BILE DUCT OBSTRUCTION [None]
  - POST PROCEDURAL HAEMORRHAGE [None]
